FAERS Safety Report 6619719-7 (Version None)
Quarter: 2010Q1

REPORT INFORMATION
  Report Type: 
  Country: None (occurrence: None)
  Receive Date: 20100309
  Receipt Date: 20100225
  Transmission Date: 20100710
  Serious: Yes (Other)
  Sender: FDA-Public Use
  Company Number: PHHY2010GB07258

PATIENT
  Sex: Male

DRUGS (1)
  1. CLOZARIL [Suspect]
     Indication: SCHIZOPHRENIA
     Dosage: 50 MG IN THE MORNING AND 75 MG IN THE EVENING
     Dates: start: 20100126

REACTIONS (7)
  - BLOOD PRESSURE INCREASED [None]
  - INFECTION [None]
  - NEUTROPHIL COUNT INCREASED [None]
  - OROPHARYNGEAL PAIN [None]
  - OVERWEIGHT [None]
  - PYREXIA [None]
  - WHITE BLOOD CELL COUNT INCREASED [None]
